FAERS Safety Report 6127991-5 (Version None)
Quarter: 2009Q1

REPORT INFORMATION
  Report Type: 
  Country: None (occurrence: None)
  Receive Date: 20090320
  Receipt Date: 20090320
  Transmission Date: 20090719
  Serious: Yes (Other)
  Sender: FDA-Public Use
  Company Number: None

PATIENT
  Age: 57 Year
  Sex: Male
  Weight: 99.7913 kg

DRUGS (2)
  1. ADVAIR DISKUS 250/50 [Suspect]
     Indication: ASTHMA
     Dosage: 1 PUFF TWICE DAILY INHALED
     Dates: start: 20060101, end: 20090101
  2. FLUTICASONE PROPIONATE 250MCG/ SALMETEROL 50 MCG [Suspect]

REACTIONS (1)
  - GINGIVAL BLEEDING [None]
